FAERS Safety Report 7676412-X (Version None)
Quarter: 2011Q3

REPORT INFORMATION
  Report Type: 
  Country: None (occurrence: None)
  Receive Date: 20110811
  Receipt Date: 20110809
  Transmission Date: 20111222
  Serious: Yes (Other)
  Sender: FDA-Public Use
  Company Number: US-PFIZER INC-2011183300

PATIENT
  Sex: Male
  Weight: 77.551 kg

DRUGS (5)
  1. CHANTIX [Suspect]
     Indication: SMOKING CESSATION THERAPY
     Dosage: 0.5 MG, 1X/DAY
     Route: 048
     Dates: start: 20110802
  2. FENTANYL [Concomitant]
     Indication: BACK PAIN
     Dosage: UNK
  3. SPIRIVA [Concomitant]
     Indication: RESPIRATORY DISORDER
     Dosage: UNK
  4. LORAZEPAM [Concomitant]
     Indication: BACK PAIN
     Dosage: UNK
  5. HYDROCODONE [Concomitant]
     Indication: BACK PAIN
     Dosage: UNK

REACTIONS (5)
  - TREMOR [None]
  - HEADACHE [None]
  - NERVOUSNESS [None]
  - DISTURBANCE IN ATTENTION [None]
  - PARAESTHESIA [None]
